FAERS Safety Report 21264106 (Version 3)
Quarter: 2023Q1

REPORT INFORMATION
  Report Type: Spontaneous
  Country: JP (occurrence: JP)
  Receive Date: 20220829
  Receipt Date: 20230118
  Transmission Date: 20230418
  Serious: Yes (Hospitalization, Other)
  Sender: FDA-Public Use
  Company Number: JP-BRISTOL-MYERS SQUIBB COMPANY-2022-094463

PATIENT
  Age: 76 Year
  Sex: Female

DRUGS (3)
  1. IPILIMUMAB [Suspect]
     Active Substance: IPILIMUMAB
     Indication: Malignant melanoma
     Dates: start: 2016
  2. NIVOLUMAB [Suspect]
     Active Substance: NIVOLUMAB
     Indication: Malignant melanoma
     Dates: start: 2015
  3. NIVOLUMAB [Suspect]
     Active Substance: NIVOLUMAB
     Dates: start: 2016

REACTIONS (4)
  - Eosinophilic gastritis [Recovering/Resolving]
  - Nausea [Recovering/Resolving]
  - Vomiting [Recovering/Resolving]
  - Eosinophilia [Recovering/Resolving]
